FAERS Safety Report 5270172-8 (Version None)
Quarter: 2007Q1

REPORT INFORMATION
  Report Type: 
  Country: None (occurrence: None)
  Receive Date: 20070320
  Receipt Date: 20070310
  Transmission Date: 20070707
  Serious: Yes (Other)
  Sender: FDA-Public Use
  Company Number: US-ROCHE-486728

PATIENT
  Age: 42 Year
  Sex: Female
  Weight: 86.2 kg

DRUGS (6)
  1. PEGASYS [Suspect]
     Route: 065
     Dates: start: 20070302, end: 20070309
  2. RIBAVIRIN [Suspect]
     Dosage: THE PATIENT TAKES 3 DOSE FORMS EVERY MORNING AND EVERY EVENING.
     Route: 065
     Dates: start: 20070302, end: 20070309
  3. GEODON [Concomitant]
     Indication: SCHIZOPHRENIA
     Dosage: THE PATIENT TAKES GEODON 80 MG ONCE DAILY AT NIGHT.
  4. LEXAPRO [Concomitant]
     Indication: DEPRESSION
     Dosage: THE PATIENT TAKES LEXAPRO 10 MG ONCE DAILY IN THE MORNING.
  5. XANAX [Concomitant]
     Indication: ANXIETY
     Dates: start: 19960615
  6. METHADONE HCL [Concomitant]
     Indication: PAIN
     Dates: start: 20010615

REACTIONS (4)
  - AMNESIA [None]
  - DIARRHOEA [None]
  - HALLUCINATION, AUDITORY [None]
  - HALLUCINATION, VISUAL [None]
